FAERS Safety Report 4496792-6 (Version None)
Quarter: 2004Q4

REPORT INFORMATION
  Report Type: 
  Country: None (occurrence: None)
  Receive Date: 20041109
  Receipt Date: 20041104
  Transmission Date: 20050328
  Serious: Yes (Other)
  Sender: FDA-Public Use
  Company Number: US-MERCK-0411USA00746

PATIENT
  Age: 88 Year
  Sex: Female

DRUGS (6)
  1. VIOXX [Suspect]
     Indication: ARTHRITIS
     Route: 048
     Dates: end: 20040101
  2. SYNTHROID [Concomitant]
     Route: 065
  3. CALCIUM (UNSPECIFIED) [Concomitant]
     Route: 065
  4. ZESTRIL [Concomitant]
     Route: 065
  5. CLONIDINE [Concomitant]
     Route: 065
  6. ADALAT [Concomitant]
     Route: 065

REACTIONS (1)
  - RENAL FAILURE [None]
